FAERS Safety Report 5056089-2 (Version None)
Quarter: 2006Q2

REPORT INFORMATION
  Report Type: 
  Country: None (occurrence: None)
  Receive Date: 20060616
  Receipt Date: 20060331
  Transmission Date: 20061013
  Serious: No
  Sender: FDA-Public Use
  Company Number: 2006US000378

PATIENT
  Age: 91 Year
  Sex: Female

DRUGS (9)
  1. VESICARE [Suspect]
     Indication: HYPERTONIC BLADDER
     Dosage: 5 MG
     Dates: start: 20060210, end: 20060211
  2. HYDRODIURIL [Concomitant]
  3. SYNTHROID [Concomitant]
  4. ASPIRIN [Concomitant]
  5. MOVE FREE [Concomitant]
  6. MULTIPLE VITAMIN (ERGOCLCIFEROL, RETINOL, TOCOPHEROL, VITAMIN B NOS, A [Concomitant]
  7. KEFLEX [Concomitant]
  8. PREMARIN [Concomitant]
  9. VITAMIN B12 FOR INJECTION [Concomitant]

REACTIONS (7)
  - BLOOD PRESSURE INCREASED [None]
  - CHILLS [None]
  - DYSPNOEA [None]
  - HAEMATURIA [None]
  - LARGE INTESTINE PERFORATION [None]
  - PYREXIA [None]
  - TREMOR [None]
